FAERS Safety Report 24833135 (Version 1)
Quarter: 2025Q1

REPORT INFORMATION
  Report Type: Spontaneous
  Country: US (occurrence: US)
  Receive Date: 20250111
  Receipt Date: 20250111
  Transmission Date: 20250409
  Serious: Yes (Other)
  Sender: GLENMARK
  Company Number: US-GLENMARK PHARMACEUTICALS-2025GMK096894

PATIENT

DRUGS (1)
  1. SEVELAMER HYDROCHLORIDE [Suspect]
     Active Substance: SEVELAMER HYDROCHLORIDE
     Indication: Product used for unknown indication
     Route: 065

REACTIONS (6)
  - Crystal deposit intestine [Unknown]
  - Gastrointestinal mucosa hyperaemia [Unknown]
  - Gastrointestinal injury [Unknown]
  - Intestinal ulcer [Unknown]
  - Colitis [Unknown]
  - Gastrointestinal haemorrhage [Unknown]
